FAERS Safety Report 23701212 (Version 2)
Quarter: 2024Q2

REPORT INFORMATION
  Report Type: Spontaneous
  Country: JP (occurrence: JP)
  Receive Date: 20240403
  Receipt Date: 20240507
  Transmission Date: 20240716
  Serious: Yes (Hospitalization)
  Sender: FDA-Public Use
  Company Number: JP-ELI_LILLY_AND_COMPANY-JP202404000928

PATIENT
  Age: 61 Year
  Sex: Male
  Weight: 79 kg

DRUGS (2)
  1. TALTZ [Suspect]
     Active Substance: IXEKIZUMAB
     Indication: Psoriasis
     Dosage: 80 MG, OTHER
     Route: 058
     Dates: start: 20210104, end: 20240227
  2. NAFTOPIDIL [Concomitant]
     Active Substance: NAFTOPIDIL
     Indication: Benign prostatic hyperplasia
     Dosage: 25 MG, DAILY
     Route: 048
     Dates: start: 20240227

REACTIONS (2)
  - Pancreatic carcinoma [Not Recovered/Not Resolved]
  - Jaundice cholestatic [Unknown]

NARRATIVE: CASE EVENT DATE: 20240227
